FAERS Safety Report 23653977 (Version 1)
Quarter: 2024Q1

REPORT INFORMATION
  Report Type: Spontaneous
  Country: US (occurrence: None)
  Receive Date: 20240319
  Receipt Date: 20240319
  Transmission Date: 20240410
  Serious: No
  Sender: FDA-Public Use
  Company Number: None

PATIENT
  Age: 77 Year
  Sex: Male

DRUGS (1)
  1. OTEZLA [Suspect]
     Active Substance: APREMILAST
     Indication: Inguinal hernia
     Dosage: FREQUENCY : TWICE A DAY;?
     Route: 048
     Dates: start: 202402

REACTIONS (3)
  - Dyspnoea [None]
  - COVID-19 pneumonia [None]
  - Product dose omission in error [None]
